FAERS Safety Report 10199523 (Version 1)
Quarter: 2014Q2

REPORT INFORMATION
  Report Type: Spontaneous
  Country: US (occurrence: US)
  Receive Date: 20140527
  Receipt Date: 20140527
  Transmission Date: 20141212
  Serious: Yes (Hospitalization)
  Sender: FDA-Public Use
  Company Number: US-ACTELION-A-NJ2014-99220

PATIENT
  Age: 26 Year
  Sex: Female

DRUGS (4)
  1. OPSUMIT [Suspect]
     Indication: PULMONARY ARTERIAL HYPERTENSION
     Dosage: 10 MG, QD
     Route: 048
     Dates: start: 20140314, end: 2014
  2. VELETRI [Suspect]
     Indication: PULMONARY ARTERIAL HYPERTENSION
     Dosage: UNK
     Route: 042
     Dates: start: 201308, end: 201403
  3. VELETRI [Suspect]
     Dosage: UNK
     Route: 042
  4. WARFARIN [Concomitant]

REACTIONS (3)
  - Device related infection [Unknown]
  - Catheter placement [Unknown]
  - Right ventricular failure [Unknown]
